FAERS Safety Report 13839239 (Version 1)
Quarter: 2017Q3

REPORT INFORMATION
  Report Type: Spontaneous
  Country: CO (occurrence: CO)
  Receive Date: 20170807
  Receipt Date: 20170807
  Transmission Date: 20171127
  Serious: Yes (Other)
  Sender: FDA-Public Use
  Company Number: CO-BAYER-2017-143445

PATIENT
  Age: 54 Year
  Sex: Female

DRUGS (1)
  1. MOXIFLOXACIN ORAL [Suspect]
     Active Substance: MOXIFLOXACIN
     Dosage: 800 MG, QD
     Route: 048

REACTIONS (3)
  - Iris transillumination defect [Not Recovered/Not Resolved]
  - Pigment dispersion syndrome [Not Recovered/Not Resolved]
  - Iridocyclitis [Recovered/Resolved]
